FAERS Safety Report 25046309 (Version 1)
Quarter: 2025Q1

REPORT INFORMATION
  Report Type: Report from Study
  Country: JP (occurrence: JP)
  Receive Date: 20250306
  Receipt Date: 20250306
  Transmission Date: 20250409
  Serious: Yes (Other)
  Sender: PFIZER
  Company Number: JP-PFIZER INC-202500049757

PATIENT
  Age: 14 Year
  Sex: Female

DRUGS (1)
  1. TOFACITINIB CITRATE [Suspect]
     Active Substance: TOFACITINIB CITRATE
     Indication: Osteomyelitis chronic
     Dosage: 5 MG, 2X/DAY
     Route: 048

REACTIONS (2)
  - Skin lesion [Unknown]
  - Condition aggravated [Unknown]
